FAERS Safety Report 6151746-9 (Version None)
Quarter: 2009Q2

REPORT INFORMATION
  Report Type: 
  Country: None (occurrence: None)
  Receive Date: 20090410
  Receipt Date: 20090403
  Transmission Date: 20091009
  Serious: Yes (Death)
  Sender: FDA-Public Use
  Company Number: A0777876A

PATIENT
  Sex: Female

DRUGS (2)
  1. AROPAX [Suspect]
     Indication: DEPRESSION
     Dosage: 10MG PER DAY
     Route: 048
     Dates: start: 20060101, end: 20090327
  2. NO CONCURRENT MEDICATIONS [Concomitant]

REACTIONS (1)
  - INFARCTION [None]
